FAERS Safety Report 16982824 (Version 1)
Quarter: 2019Q4

REPORT INFORMATION
  Report Type: Spontaneous
  Country: US (occurrence: US)
  Receive Date: 20191030
  Receipt Date: 20191030
  Transmission Date: 20200122
  Serious: Yes (Life-Threatening, Hospitalization, Disabling)
  Sender: FDA-Public Use
  Company Number: None

PATIENT
  Age: 90 Year
  Sex: Female
  Weight: 60.3 kg

DRUGS (6)
  1. VITAMIN B12 [Concomitant]
     Active Substance: CYANOCOBALAMIN
  2. GABAPENTIN. [Suspect]
     Active Substance: GABAPENTIN
     Indication: PAIN
     Dosage: ?          QUANTITY:1 CAPSULE(S);?
     Route: 048
     Dates: start: 20191023, end: 20191026
  3. CENTRUM VITAMINS LIQUID [Concomitant]
     Active Substance: VITAMINS
  4. VITAMIN D2 50,000MG [Concomitant]
  5. FUROSEMIDE 40MG [Concomitant]
     Active Substance: FUROSEMIDE
  6. MULTIVITAMIN [Concomitant]
     Active Substance: VITAMINS

REACTIONS (14)
  - Dementia Alzheimer^s type [None]
  - Muscular weakness [None]
  - Renal impairment [None]
  - Confusional state [None]
  - Erythema [None]
  - Asthenia [None]
  - Decreased appetite [None]
  - Dysstasia [None]
  - Nausea [None]
  - Peripheral swelling [None]
  - Blister [None]
  - Hypersomnia [None]
  - Pain [None]
  - Respiratory disorder [None]

NARRATIVE: CASE EVENT DATE: 20191024
